FAERS Safety Report 20011478 (Version 1)
Quarter: 2021Q4

REPORT INFORMATION
  Report Type: Spontaneous
  Country: US (occurrence: US)
  Receive Date: 20211029
  Receipt Date: 20211029
  Transmission Date: 20220303
  Serious: Yes (unspecified)
  Sender: FDA-Public Use
  Company Number: None

PATIENT
  Age: 34 Year
  Sex: Female
  Weight: 99 kg

DRUGS (1)
  1. MILI [Suspect]
     Active Substance: ETHINYL ESTRADIOL\NORGESTIMATE
     Indication: Contraception
     Dosage: ?          QUANTITY:28 TABLET(S);
     Route: 048
     Dates: start: 20210401, end: 20210731

REACTIONS (4)
  - Anxiety [None]
  - Palpitations [None]
  - Product availability issue [None]
  - Product substitution issue [None]

NARRATIVE: CASE EVENT DATE: 20211028
